FAERS Safety Report 8147624-6 (Version None)
Quarter: 2012Q1

REPORT INFORMATION
  Report Type: 
  Country: None (occurrence: None)
  Receive Date: 20120218
  Receipt Date: 20110315
  Transmission Date: 20120608
  Serious: No
  Sender: FDA-Public Use
  Company Number: US-ALLERGAN-1102880US

PATIENT
  Age: 40 Year
  Sex: Male

DRUGS (7)
  1. BOTOX COSMETIC [Suspect]
     Dosage: UNK
     Dates: start: 20091202, end: 20091202
  2. BOTOX COSMETIC [Suspect]
     Dosage: UNK
     Dates: start: 20080924, end: 20080924
  3. BOTOX COSMETIC [Suspect]
     Dosage: UNK
     Dates: start: 20101026, end: 20101026
  4. BOTOX COSMETIC [Suspect]
     Dosage: UNK
     Dates: start: 20090401, end: 20090401
  5. BOTOX COSMETIC [Suspect]
     Dosage: UNK
     Dates: start: 20080711, end: 20080711
  6. BOTOX COSMETIC [Suspect]
     Indication: SKIN WRINKLING
     Dosage: 40 UNITS, SINGLE
     Dates: start: 20110216, end: 20110216
  7. BOTOX COSMETIC [Suspect]
     Dosage: UNK
     Dates: start: 20090106, end: 20090106

REACTIONS (1)
  - SKIN TIGHTNESS [None]
